FAERS Safety Report 25089968 (Version 1)
Quarter: 2025Q1

REPORT INFORMATION
  Report Type: Spontaneous
  Country: CN (occurrence: CN)
  Receive Date: 20250318
  Receipt Date: 20250318
  Transmission Date: 20250408
  Serious: Yes (Hospitalization)
  Sender: MYLAN
  Company Number: CN-MYLANLABS-2025M1022477

PATIENT
  Age: 14 Year
  Sex: Female
  Weight: 50 kg

DRUGS (8)
  1. ZOLOFT [Suspect]
     Active Substance: SERTRALINE HYDROCHLORIDE
     Indication: Overdose
     Dosage: 13 DOSAGE FORM, QD
     Dates: start: 20250303, end: 20250303
  2. ZOLOFT [Suspect]
     Active Substance: SERTRALINE HYDROCHLORIDE
     Dosage: 13 DOSAGE FORM, QD
     Route: 048
     Dates: start: 20250303, end: 20250303
  3. ZOLOFT [Suspect]
     Active Substance: SERTRALINE HYDROCHLORIDE
     Dosage: 13 DOSAGE FORM, QD
     Route: 048
     Dates: start: 20250303, end: 20250303
  4. ZOLOFT [Suspect]
     Active Substance: SERTRALINE HYDROCHLORIDE
     Dosage: 13 DOSAGE FORM, QD
     Dates: start: 20250303, end: 20250303
  5. ALPRAZOLAM [Suspect]
     Active Substance: ALPRAZOLAM
     Indication: Overdose
     Dosage: 8 DOSAGE FORM, QD
     Dates: start: 20250303, end: 20250303
  6. ALPRAZOLAM [Suspect]
     Active Substance: ALPRAZOLAM
     Dosage: 8 DOSAGE FORM, QD
     Route: 048
     Dates: start: 20250303, end: 20250303
  7. ALPRAZOLAM [Suspect]
     Active Substance: ALPRAZOLAM
     Dosage: 8 DOSAGE FORM, QD
     Route: 048
     Dates: start: 20250303, end: 20250303
  8. ALPRAZOLAM [Suspect]
     Active Substance: ALPRAZOLAM
     Dosage: 8 DOSAGE FORM, QD
     Dates: start: 20250303, end: 20250303

REACTIONS (3)
  - Dizziness [Recovering/Resolving]
  - Asthenia [Recovering/Resolving]
  - Palpitations [Recovering/Resolving]

NARRATIVE: CASE EVENT DATE: 20250303
